FAERS Safety Report 4728339-0 (Version None)
Quarter: 2005Q3

REPORT INFORMATION
  Report Type: 
  Country: None (occurrence: None)
  Receive Date: 20050727
  Receipt Date: 20050725
  Transmission Date: 20060218
  Serious: Yes (Hospitalization)
  Sender: FDA-Public Use
  Company Number: 215357

PATIENT
  Age: 54 Year
  Sex: Male

DRUGS (10)
  1. RAPTIVA [Suspect]
     Indication: PSORIASIS
     Dosage: SEE IMAGE
     Dates: start: 20050301, end: 20050503
  2. RAPTIVA [Suspect]
     Indication: PSORIASIS
     Dosage: SEE IMAGE
     Dates: start: 20050517, end: 20050531
  3. ASPIRIN [Concomitant]
  4. LIPITOR (ATORVATATIN CLACIUM) [Concomitant]
  5. PROTONIX [Concomitant]
  6. PLAVOX (CLOPIDOGREL BISULFATE) [Concomitant]
  7. ZYRTEC [Concomitant]
  8. SINGULAIR (MONTEFLUKAST SODIUM) [Concomitant]
  9. BENICAR [Concomitant]
  10. LOPRESSOR (METORPOLOL TARTRATE) [Concomitant]

REACTIONS (4)
  - INFECTION [None]
  - PROSTATITIS [None]
  - PSORIATIC ARTHROPATHY [None]
  - RESPIRATORY DISORDER [None]
